FAERS Safety Report 10830642 (Version 2)
Quarter: 2015Q1

REPORT INFORMATION
  Report Type: Spontaneous
  Country: US (occurrence: US)
  Receive Date: 20150219
  Receipt Date: 20150305
  Transmission Date: 20150721
  Serious: Yes (Hospitalization, Other)
  Sender: FDA-Public Use
  Company Number: US-AMGEN-USASP2015014344

PATIENT
  Age: 67 Year
  Sex: Female
  Weight: 60.32 kg

DRUGS (9)
  1. PROLIA [Suspect]
     Active Substance: DENOSUMAB
     Indication: OSTEOPOROSIS
     Dosage: 60 MG, Q6MO
     Route: 058
     Dates: start: 20150210
  2. BUPROPION                          /00700502/ [Concomitant]
     Indication: DEPRESSION
     Dosage: 150 MG, QD
     Route: 048
  3. CYMBALTA [Concomitant]
     Active Substance: DULOXETINE HYDROCHLORIDE
     Dosage: 30 MG, QD
  4. DEXILANT [Concomitant]
     Active Substance: DEXLANSOPRAZOLE
     Indication: GASTROOESOPHAGEAL REFLUX DISEASE
     Dosage: 60 MG, QD
  5. LISINOPRIL. [Concomitant]
     Active Substance: LISINOPRIL
     Indication: HYPERTENSION
     Dosage: 5 MG, QD
  6. AZELASTINE                         /00884002/ [Concomitant]
     Indication: HYPERSENSITIVITY
     Dosage: 1 PUFF IN EACH NOSTRIL, BID
  7. DULOXETINE                         /01749302/ [Concomitant]
     Indication: DEPRESSION
     Dosage: 60 MG, QD
     Route: 048
  8. ALBUTEROL SULFATE. [Concomitant]
     Active Substance: ALBUTEROL SULFATE
     Indication: ASTHMA
     Dosage: 2 PUFFS AS NEEDED
  9. SIMVASTATIN. [Concomitant]
     Active Substance: SIMVASTATIN
     Dosage: 10 MG IN EVENING, QD

REACTIONS (5)
  - Speech disorder [Unknown]
  - Dyskinesia [Unknown]
  - Face oedema [Recovered/Resolved]
  - Drug hypersensitivity [Unknown]
  - Facial paresis [Not Recovered/Not Resolved]

NARRATIVE: CASE EVENT DATE: 201502
